FAERS Safety Report 8590648 (Version 5)
Quarter: 2012Q4

REPORT INFORMATION
  Report Type: 
  Country: JP (occurrence: JP)
  Receive Date: 20120601
  Receipt Date: 20121217
  Transmission Date: 20130627
  Serious: Yes (Hospitalization, Other)
  Sender: FDA-Public Use
  Company Number: JP-VERTEX PHARMACEUTICALS INC.-AE-2012-006653

PATIENT
  Age: 66 Year
  Sex: Male

DRUGS (16)
  1. TELAVIC [Suspect]
     Indication: CHRONIC HEPATITIS C
     Dosage: 2250 mg, qd
     Route: 048
     Dates: start: 20120315, end: 20120516
  2. PEGINTRON                          /01543001/ [Suspect]
     Indication: CHRONIC HEPATITIS C
     Dosage: 1.27 ?g/kg, week
     Route: 058
     Dates: start: 20120315, end: 20120321
  3. PEGINTRON                          /01543001/ [Suspect]
     Dosage: 0.8 ?g/kg, qw
     Route: 058
     Dates: start: 20120322, end: 20120418
  4. PEGINTRON                          /01543001/ [Suspect]
     Dosage: 0.95 ?g/kg, qw
     Route: 058
     Dates: start: 20120419, end: 20120501
  5. PEGINTRON                          /01543001/ [Suspect]
     Dosage: 1.1 ?g/kg, qw
     Route: 058
     Dates: start: 20120502, end: 20120509
  6. PEGINTRON                          /01543001/ [Suspect]
     Dosage: 1.41 ?g/kg, qw
     Route: 058
     Dates: start: 20120510
  7. PEGINTRON                          /01543001/ [Suspect]
     Dosage: 1.5 ?g/kg, qw
     Route: 058
  8. RIBAVIRIN [Suspect]
     Indication: CHRONIC HEPATITIS C
     Dosage: 800 mg, qd
     Route: 048
     Dates: start: 20120315, end: 20120323
  9. RIBAVIRIN [Suspect]
     Dosage: 600 mg, qd
     Route: 048
     Dates: start: 20120324, end: 20120325
  10. RIBAVIRIN [Suspect]
     Dosage: 200 mg, qd
     Route: 048
     Dates: start: 20120326, end: 20120627
  11. RIBAVIRIN [Suspect]
     Dosage: 400 mg, qd
     Route: 048
     Dates: start: 20120628, end: 20120808
  12. RIBAVIRIN [Suspect]
     Dosage: 600 mg, qd
     Route: 048
     Dates: start: 20120809
  13. URSO                               /00465701/ [Concomitant]
     Dosage: 900 mg, qd
     Route: 048
     Dates: start: 20110308, end: 20120314
  14. CALONAL [Concomitant]
     Dosage: 600 mg, qd
     Route: 048
     Dates: start: 20120315
  15. CALONAL [Concomitant]
     Dosage: 400 mg, qd
     Route: 048
  16. TAKEPRON [Concomitant]
     Dosage: 30 mg, qd
     Route: 048

REACTIONS (4)
  - Erythema multiforme [Recovered/Resolved]
  - Neutrophil count decreased [Recovered/Resolved]
  - Haemoglobin decreased [Not Recovered/Not Resolved]
  - Platelet count decreased [Not Recovered/Not Resolved]
